FAERS Safety Report 17298505 (Version 1)
Quarter: 2020Q1

REPORT INFORMATION
  Report Type: Spontaneous
  Country: US (occurrence: US)
  Receive Date: 20200122
  Receipt Date: 20200122
  Transmission Date: 20200409
  Serious: No
  Sender: FDA-Public Use
  Company Number: US-GLAXOSMITHKLINE-US2020006481

PATIENT
  Age: 1 Month
  Sex: Female

DRUGS (1)
  1. FLOVENT HFA [Suspect]
     Active Substance: FLUTICASONE PROPIONATE
     Indication: CHRONIC RESPIRATORY DISEASE
     Dosage: 2 PUFF(S), BID
     Route: 055
     Dates: start: 201704

REACTIONS (3)
  - Product administered to patient of inappropriate age [Unknown]
  - Wrong technique in device usage process [Unknown]
  - Product dose omission [Unknown]

NARRATIVE: CASE EVENT DATE: 201704
